FAERS Safety Report 5738091-8 (Version None)
Quarter: 2008Q2

REPORT INFORMATION
  Report Type: 
  Country: None (occurrence: None)
  Receive Date: 20080514
  Receipt Date: 20080509
  Transmission Date: 20081010
  Serious: Yes (Other)
  Sender: FDA-Public Use
  Company Number: US-ELI_LILLY_AND_COMPANY-US200805002174

PATIENT
  Sex: Female

DRUGS (2)
  1. HUMALOG [Suspect]
  2. NOVOLOG MIX 70/30 [Concomitant]

REACTIONS (1)
  - RETINOPATHY [None]
